FAERS Safety Report 13834128 (Version 7)
Quarter: 2018Q1

REPORT INFORMATION
  Report Type: Report from Study
  Country: None (occurrence: US)
  Receive Date: 20170804
  Receipt Date: 20180305
  Transmission Date: 20180508
  Serious: Yes (Other)
  Sender: FDA-Public Use
  Company Number: US-ABBVIE-17K-163-2055554-00

PATIENT
  Age: 37 Year
  Sex: Female

DRUGS (6)
  1. OXYCODONE [Suspect]
     Active Substance: OXYCODONE
     Indication: PRODUCT USED FOR UNKNOWN INDICATION
     Route: 065
  2. DICLOFENAC [Concomitant]
     Active Substance: DICLOFENAC
     Indication: MYALGIA
  3. HUMIRA [Suspect]
     Active Substance: ADALIMUMAB
     Indication: PSORIATIC ARTHROPATHY
     Route: 058
     Dates: start: 201702, end: 201706
  4. HUMIRA [Suspect]
     Active Substance: ADALIMUMAB
     Dosage: MAINTENANCE DOSE
     Route: 058
     Dates: start: 20170615, end: 2017
  5. HUMIRA [Suspect]
     Active Substance: ADALIMUMAB
     Dosage: MAINTENANCE DOSE
     Route: 058
     Dates: start: 201708, end: 20171002
  6. HUMIRA [Suspect]
     Active Substance: ADALIMUMAB
     Route: 058
     Dates: end: 201801

REACTIONS (28)
  - Post procedural haemorrhage [Not Recovered/Not Resolved]
  - Dizziness [Unknown]
  - Pain in extremity [Not Recovered/Not Resolved]
  - Pain [Not Recovered/Not Resolved]
  - Pyrexia [Not Recovered/Not Resolved]
  - Muscle spasms [Unknown]
  - Headache [Unknown]
  - Pain in extremity [Not Recovered/Not Resolved]
  - Hyperhidrosis [Not Recovered/Not Resolved]
  - Nasopharyngitis [Unknown]
  - Abdominal pain [Not Recovered/Not Resolved]
  - Vomiting [Unknown]
  - Arthralgia [Unknown]
  - Ovarian cyst ruptured [Recovered/Resolved]
  - Nausea [Unknown]
  - Chest pain [Not Recovered/Not Resolved]
  - Fatigue [Unknown]
  - Gait disturbance [Not Recovered/Not Resolved]
  - Pelvic pain [Not Recovered/Not Resolved]
  - Pain in extremity [Not Recovered/Not Resolved]
  - Drug ineffective [Not Recovered/Not Resolved]
  - Back pain [Not Recovered/Not Resolved]
  - Loss of personal independence in daily activities [Not Recovered/Not Resolved]
  - Procedural pain [Not Recovered/Not Resolved]
  - Musculoskeletal pain [Not Recovered/Not Resolved]
  - Ovarian haemorrhage [Not Recovered/Not Resolved]
  - Chills [Not Recovered/Not Resolved]
  - Chest discomfort [Unknown]

NARRATIVE: CASE EVENT DATE: 2017
